FAERS Safety Report 12160776 (Version 3)
Quarter: 2016Q2

REPORT INFORMATION
  Report Type: Report from Study
  Country: AR (occurrence: AR)
  Receive Date: 20160308
  Receipt Date: 20160503
  Transmission Date: 20160815
  Serious: Yes (Other)
  Sender: FDA-Public Use
  Company Number: AR-BIOGEN-2016BI00195971

PATIENT
  Age: 68 Year
  Sex: Male

DRUGS (2)
  1. TYSABRI [Suspect]
     Active Substance: NATALIZUMAB
     Indication: MULTIPLE SCLEROSIS
     Dosage: INFUSED OVER 1 HOUR
     Route: 042
     Dates: start: 201412, end: 20160105
  2. PREGABALIN. [Concomitant]
     Active Substance: PREGABALIN
     Indication: PRODUCT USED FOR UNKNOWN INDICATION
     Route: 065

REACTIONS (1)
  - Prostate cancer [Not Recovered/Not Resolved]

NARRATIVE: CASE EVENT DATE: 201512
